FAERS Safety Report 9201824 (Version 1)
Quarter: 2013Q2

REPORT INFORMATION
  Report Type: Spontaneous
  Country: DE (occurrence: DE)
  Receive Date: 20130401
  Receipt Date: 20130401
  Transmission Date: 20140414
  Serious: Yes (Hospitalization, Other)
  Sender: FDA-Public Use
  Company Number: DE-ROCHE-1203696

PATIENT
  Age: 57 Year
  Sex: Female
  Weight: 100 kg

DRUGS (10)
  1. MABTHERA [Suspect]
     Indication: NON-HODGKIN^S LYMPHOMA
     Route: 042
     Dates: start: 20130304
  2. BENDAMUSTINA [Suspect]
     Indication: NON-HODGKIN^S LYMPHOMA
     Route: 042
     Dates: start: 20130304
  3. BELOC [Concomitant]
     Route: 065
  4. ALLOPURINOL [Concomitant]
     Route: 065
  5. ACTRAPID [Concomitant]
     Route: 065
  6. SERTRALINA [Concomitant]
     Route: 048
  7. QUENSYL [Concomitant]
     Route: 048
  8. PREDNISOLON [Concomitant]
     Route: 048
  9. FOLSAN [Concomitant]
     Route: 065
  10. EBRANTIL [Concomitant]
     Dosage: 90/60 MG
     Route: 048

REACTIONS (6)
  - Incontinence [Recovering/Resolving]
  - Visual impairment [Recovering/Resolving]
  - Pyrexia [Recovering/Resolving]
  - Vertigo [Recovering/Resolving]
  - Confusional state [Recovering/Resolving]
  - C-reactive protein increased [Recovering/Resolving]
